FAERS Safety Report 6510325-1 (Version None)
Quarter: 2009Q4

REPORT INFORMATION
  Report Type: 
  Country: None (occurrence: None)
  Receive Date: 20091222
  Receipt Date: 20090930
  Transmission Date: 20100525
  Serious: No
  Sender: FDA-Public Use
  Company Number: US-ASTRAZENECA-2009SE16921

PATIENT
  Age: 23956 Day
  Sex: Female

DRUGS (5)
  1. CRESTOR [Suspect]
     Route: 048
     Dates: start: 20090903, end: 20090910
  2. CRESTOR [Suspect]
     Route: 048
     Dates: start: 20090925, end: 20090925
  3. HERBAL SUPPLEMENTS OF TURMERIC [Concomitant]
  4. VITAMINS [Concomitant]
  5. FISH OIL [Concomitant]

REACTIONS (2)
  - MUSCLE STRAIN [None]
  - PARAESTHESIA [None]
